FAERS Safety Report 5318720-3 (Version None)
Quarter: 2007Q2

REPORT INFORMATION
  Report Type: 
  Country: None (occurrence: None)
  Receive Date: 20070503
  Receipt Date: 20070503
  Transmission Date: 20071010
  Serious: Yes (Hospitalization)
  Sender: FDA-Public Use
  Company Number: None

PATIENT
  Age: 22 Year
  Sex: Female
  Weight: 40 kg

DRUGS (2)
  1. HUMIRA [Suspect]
     Indication: CROHN'S DISEASE
     Dosage: 40MG (0.8ML) X 1 DOSE SQ
     Route: 058
     Dates: start: 20070102
  2. AZATHIOPRINE [Concomitant]

REACTIONS (6)
  - DIARRHOEA [None]
  - JOINT SWELLING [None]
  - OEDEMA PERIPHERAL [None]
  - SWELLING FACE [None]
  - TREATMENT NONCOMPLIANCE [None]
  - URINE OUTPUT DECREASED [None]
